FAERS Safety Report 9082443 (Version 1)
Quarter: 2013Q1

REPORT INFORMATION
  Report Type: Spontaneous
  Country: US (occurrence: US)
  Receive Date: 20130130
  Receipt Date: 20130130
  Transmission Date: 20140127
  Serious: No
  Sender: FDA-Public Use
  Company Number: US-ABBOTT-12P-163-0962728-00

PATIENT
  Sex: 0

DRUGS (4)
  1. HUMIRA 40 MG/0.8 ML PEN [Suspect]
     Indication: CROHN^S DISEASE
     Dates: start: 2011
  2. IRON [Concomitant]
     Indication: MINERAL SUPPLEMENTATION
  3. PREVACID [Concomitant]
     Indication: CROHN^S DISEASE
  4. 6-MP [Concomitant]
     Indication: CROHN^S DISEASE

REACTIONS (5)
  - Large intestinal stenosis [Not Recovered/Not Resolved]
  - Crohn^s disease [Not Recovered/Not Resolved]
  - Diarrhoea [Not Recovered/Not Resolved]
  - Abdominal pain [Not Recovered/Not Resolved]
  - Arthralgia [Not Recovered/Not Resolved]
